FAERS Safety Report 25430620 (Version 1)
Quarter: 2025Q2

REPORT INFORMATION
  Report Type: Spontaneous
  Country: GB (occurrence: GB)
  Receive Date: 20250612
  Receipt Date: 20250612
  Transmission Date: 20250716
  Serious: Yes (Life-Threatening, Other)
  Sender: PFIZER
  Company Number: GB-MHRA-WEBRADR-202506120053550450-GFTPK

PATIENT
  Age: 69 Year
  Sex: Male
  Weight: 77 kg

DRUGS (1)
  1. SULFASALAZINE [Suspect]
     Active Substance: SULFASALAZINE
     Indication: Psoriatic arthropathy
     Dosage: 1 G, 2X/DAY
     Route: 048
     Dates: start: 20250505, end: 20250525

REACTIONS (1)
  - Deep vein thrombosis [Not Recovered/Not Resolved]

NARRATIVE: CASE EVENT DATE: 20250611
